FAERS Safety Report 15246050 (Version 1)
Quarter: 2018Q3

REPORT INFORMATION
  Report Type: Spontaneous
  Country: US (occurrence: US)
  Receive Date: 20180713
  Receipt Date: 20180713
  Transmission Date: 20181010
  Serious: Yes (Hospitalization)
  Sender: FDA-Public Use
  Company Number: None

PATIENT
  Age: 68 Year
  Sex: Female

DRUGS (2)
  1. CIMZIA [Concomitant]
     Active Substance: CERTOLIZUMAB PEGOL
     Dates: start: 20180101
  2. OTEZLA [Suspect]
     Active Substance: APREMILAST
     Indication: PSORIASIS
     Route: 048

REACTIONS (3)
  - Constipation [None]
  - Gastrointestinal disorder [None]
  - Abdominal distension [None]
